FAERS Safety Report 8078461-9 (Version None)
Quarter: 2012Q1

REPORT INFORMATION
  Report Type: 
  Country: None (occurrence: None)
  Receive Date: 20120127
  Receipt Date: 20110301
  Transmission Date: 20120608
  Serious: No
  Sender: FDA-Public Use
  Company Number: US-ABBOTT-10P-163-0663232-00

PATIENT
  Sex: Female
  Weight: 67.192 kg

DRUGS (5)
  1. PREMARIN [Concomitant]
     Indication: HORMONE REPLACEMENT THERAPY
     Dosage: UNKNOWN
     Dates: start: 19900101
  2. SYNTHROID [Concomitant]
     Indication: HYPOTHYROIDISM
     Dosage: UNKNOWN
     Dates: start: 20080101
  3. HUMIRA [Suspect]
     Indication: ANKYLOSING SPONDYLITIS
     Dates: start: 20080101
  4. PRILOSEC [Concomitant]
     Indication: REFLUX LARYNGITIS
  5. CYTOMEL [Concomitant]
     Indication: HYPOTHYROIDISM
     Dosage: UNKNOWN
     Dates: start: 20080101

REACTIONS (5)
  - INJECTION SITE HAEMATOMA [None]
  - VASCULITIS [None]
  - SPIDER NAEVUS [None]
  - INJECTION SITE PAIN [None]
  - HYPERAESTHESIA [None]
